FAERS Safety Report 11867749 (Version 1)
Quarter: 2015Q4

REPORT INFORMATION
  Report Type: Spontaneous
  Country: US (occurrence: US)
  Receive Date: 20151224
  Receipt Date: 20151224
  Transmission Date: 20160305
  Serious: No
  Sender: FDA-Public Use
  Company Number: US-GUERBET LLC-1045875

PATIENT
  Age: 70 Year
  Sex: Male

DRUGS (1)
  1. OXILAN [Suspect]
     Active Substance: IOXILAN
     Indication: ANGIOGRAM
     Route: 042
     Dates: start: 20100225, end: 20100225

REACTIONS (1)
  - Nausea [Recovered/Resolved]

NARRATIVE: CASE EVENT DATE: 20100225
